FAERS Safety Report 20550568 (Version 1)
Quarter: 2022Q1

REPORT INFORMATION
  Report Type: Spontaneous
  Country: ES (occurrence: ES)
  Receive Date: 20220304
  Receipt Date: 20220304
  Transmission Date: 20220424
  Serious: Yes (Hospitalization, Other)
  Sender: FDA-Public Use
  Company Number: ES-AEMPS-332943

PATIENT
  Age: 82 Year
  Sex: Male

DRUGS (4)
  1. EPLERENONE [Interacting]
     Active Substance: EPLERENONE
     Indication: Product used for unknown indication
     Dosage: 25 MILLIGRAM, EVERY 48 H
     Route: 048
     Dates: start: 20131011, end: 20131111
  2. IVABRADINE [Interacting]
     Active Substance: IVABRADINE
     Indication: Product used for unknown indication
     Dosage: 5 MILLIGRAM, TWO TIMES A DAY
     Route: 048
     Dates: start: 20131011, end: 20131111
  3. FUROSEMIDE [Interacting]
     Active Substance: FUROSEMIDE
     Indication: Product used for unknown indication
     Dosage: 120 MILLIGRAM, ONCE A DAY (40 MG AT 8 HOURS)
     Route: 048
     Dates: start: 20131011, end: 20131111
  4. CHLORTHALIDONE [Interacting]
     Active Substance: CHLORTHALIDONE
     Indication: Product used for unknown indication
     Dosage: 25 MILLIGRAM 48 HOURS, 30 TABLETS
     Route: 065
     Dates: start: 2013, end: 20131111

REACTIONS (1)
  - Chronic kidney disease [Recovered/Resolved]

NARRATIVE: CASE EVENT DATE: 20131111
